FAERS Safety Report 8177798-2 (Version None)
Quarter: 2012Q1

REPORT INFORMATION
  Report Type: 
  Country: None (occurrence: None)
  Receive Date: 20120301
  Receipt Date: 20120227
  Transmission Date: 20120608
  Serious: Yes (Other)
  Sender: FDA-Public Use
  Company Number: US-PFIZER INC-2012028649

PATIENT
  Sex: Female
  Weight: 65.76 kg

DRUGS (8)
  1. LYRICA [Suspect]
     Indication: POST HERPETIC NEURALGIA
     Dosage: 300 MG, 2X/DAY
     Route: 048
     Dates: start: 20051101
  2. BUPROPION [Concomitant]
     Indication: POST HERPETIC NEURALGIA
     Dosage: 150 MG, 2X/DAY
  3. NORTRIPTYLINE [Concomitant]
     Indication: POST HERPETIC NEURALGIA
     Dosage: 30 MG, DAILY
  4. MS CONTIN [Concomitant]
     Dosage: UNK
  5. MOTRIN [Concomitant]
     Dosage: UNK
  6. RITALIN [Concomitant]
     Dosage: UNK
  7. KEPPRA [Concomitant]
     Indication: POST HERPETIC NEURALGIA
     Dosage: 125 MG, DAILY
  8. EFFEXOR [Concomitant]
     Dosage: UNK

REACTIONS (1)
  - TOOTH EROSION [None]
